FAERS Safety Report 5412290-7 (Version None)
Quarter: 2007Q3

REPORT INFORMATION
  Report Type: 
  Country: None (occurrence: None)
  Receive Date: 20070810
  Receipt Date: 20070810
  Transmission Date: 20080115
  Serious: Yes (Hospitalization)
  Sender: FDA-Public Use
  Company Number: None

PATIENT
  Age: 3 Year
  Sex: Male
  Weight: 15.4223 kg

DRUGS (1)
  1. OMNICEF [Suspect]
     Indication: PNEUMONIA
     Dosage: 1 TEASPOON 2XDAILY PO
     Route: 048
     Dates: start: 20060208, end: 20060212

REACTIONS (4)
  - ASTHENIA [None]
  - CLOSTRIDIAL INFECTION [None]
  - COMA [None]
  - DIARRHOEA [None]
